FAERS Safety Report 20976387 (Version 5)
Quarter: 2022Q3

REPORT INFORMATION
  Report Type: Report from Study
  Country: CA (occurrence: CA)
  Receive Date: 20220617
  Receipt Date: 20220810
  Transmission Date: 20221026
  Serious: Yes (Other)
  Sender: FDA-Public Use
  Company Number: CA-TAKEDA-2022TUS040250

PATIENT
  Age: 38 Year
  Sex: Female

DRUGS (5)
  1. VEDOLIZUMAB [Suspect]
     Active Substance: VEDOLIZUMAB
     Indication: Colitis ulcerative
     Dosage: 300 MILLIGRAM
     Route: 042
     Dates: start: 20220425
  2. VEDOLIZUMAB [Suspect]
     Active Substance: VEDOLIZUMAB
     Dosage: 300 MILLIGRAM, Q4WEEKS
     Route: 042
     Dates: start: 20220802
  3. PREDNISONE [Concomitant]
     Active Substance: PREDNISONE
     Dosage: UNK
     Dates: start: 20220218
  4. MESALAMINE [Concomitant]
     Active Substance: MESALAMINE
     Dosage: 4.8 GRAM, QD
     Dates: start: 201712
  5. Salofalk [Concomitant]
     Dosage: UNK UNK, QD
     Dates: start: 201712

REACTIONS (8)
  - Rectal haemorrhage [Recovered/Resolved]
  - Frequent bowel movements [Unknown]
  - Abdominal pain [Recovered/Resolved]
  - General physical health deterioration [Recovered/Resolved]
  - Mucous stools [Unknown]
  - Limb discomfort [Unknown]
  - Faeces soft [Unknown]
  - Off label use [Unknown]

NARRATIVE: CASE EVENT DATE: 20220802
